FAERS Safety Report 7813205-4 (Version None)
Quarter: 2011Q4

REPORT INFORMATION
  Report Type: 
  Country: None (occurrence: None)
  Receive Date: 20111013
  Receipt Date: 20111004
  Transmission Date: 20120403
  Serious: Yes (Other)
  Sender: FDA-Public Use
  Company Number: US-ASTRAZENECA-2011SE59846

PATIENT
  Sex: Female
  Weight: 58.5 kg

DRUGS (11)
  1. HYDROCHLOROTHIAZIDE [Concomitant]
  2. FIORICET [Concomitant]
  3. IMITREX [Concomitant]
  4. SYMBICORT [Suspect]
     Route: 055
  5. SEROQUEL [Concomitant]
  6. CLONAZEPAM [Concomitant]
  7. PROVENTIL [Concomitant]
     Route: 055
  8. AMLODIPINE [Concomitant]
  9. ALBUTEROL [Concomitant]
  10. CELEXA [Concomitant]
  11. TOPAMAX [Concomitant]

REACTIONS (7)
  - BIPOLAR I DISORDER [None]
  - ABASIA [None]
  - DYSPNOEA [None]
  - CONVULSION [None]
  - MIGRAINE [None]
  - HYPERTENSION [None]
  - ASTHMA [None]
